FAERS Safety Report 7960324-8 (Version None)
Quarter: 2011Q4

REPORT INFORMATION
  Report Type: 
  Country: None (occurrence: None)
  Receive Date: 20111206
  Receipt Date: 20111202
  Transmission Date: 20120403
  Serious: Yes (Death, Other)
  Sender: FDA-Public Use
  Company Number: PHHY2011JP90497

PATIENT
  Age: 40 Year
  Sex: Female

DRUGS (3)
  1. STEROIDS NOS [Suspect]
     Indication: MYASTHENIA GRAVIS
  2. NEORAL [Suspect]
     Indication: MYASTHENIA GRAVIS
     Dosage: UNK
  3. TACROLIMUS [Suspect]
     Indication: MYASTHENIA GRAVIS

REACTIONS (7)
  - SEPSIS [None]
  - HEPATIC FUNCTION ABNORMAL [None]
  - GENERALISED ERYTHEMA [None]
  - ERYTHRODERMIC PSORIASIS [None]
  - PLEURAL NEOPLASM [None]
  - PERITONEAL NEOPLASM [None]
  - DIARRHOEA [None]
